FAERS Safety Report 15281689 (Version 2)
Quarter: 2019Q3

REPORT INFORMATION
  Report Type: Spontaneous
  Country: US (occurrence: US)
  Receive Date: 20180815
  Receipt Date: 20190927
  Transmission Date: 20191004
  Serious: No
  Sender: FDA-Public Use
  Company Number: US-PFIZER INC-2018325328

PATIENT
  Age: 43 Year
  Sex: Male

DRUGS (2)
  1. GENOTROPIN [Suspect]
     Active Substance: SOMATROPIN
     Dosage: 0.3 MG, DAILY
     Dates: start: 20111009
  2. GENOTROPIN [Suspect]
     Active Substance: SOMATROPIN
     Dosage: 0.3 MG, UNK
     Dates: start: 201509

REACTIONS (6)
  - Blood glucose increased [Unknown]
  - Blood thyroid stimulating hormone decreased [Unknown]
  - Insulin-like growth factor decreased [Unknown]
  - Tri-iodothyronine decreased [Unknown]
  - Thyroxine free decreased [Unknown]
  - Expired device used [Unknown]

NARRATIVE: CASE EVENT DATE: 20161227
